FAERS Safety Report 20506152 (Version 1)
Quarter: 2022Q1

REPORT INFORMATION
  Report Type: Spontaneous
  Country: IT (occurrence: IT)
  Receive Date: 20220223
  Receipt Date: 20220223
  Transmission Date: 20220423
  Serious: Yes (Hospitalization)
  Sender: FDA-Public Use
  Company Number: IT-MYLANLABS-2022M1013570

PATIENT
  Age: 62 Year
  Sex: Male

DRUGS (11)
  1. TRAMADOL [Suspect]
     Active Substance: TRAMADOL
     Indication: Pain
     Dosage: 200 MILLIGRAM, QD
     Route: 042
  2. ROPIVACAINE [Suspect]
     Active Substance: ROPIVACAINE
     Indication: Product used for unknown indication
     Dosage: 0.125 MILLIGRAM PER MILLILITRE
  3. SUFENTANIL [Suspect]
     Active Substance: SUFENTANIL
     Indication: Product used for unknown indication
     Dosage: 1 MICROGRAM (SOLUTION RATE 5 ML / H)
  4. ACETAMINOPHEN\OXYCODONE HYDROCHLORIDE [Concomitant]
     Active Substance: ACETAMINOPHEN\OXYCODONE HYDROCHLORIDE
     Dosage: 1 DOSAGE FORM
  5. ACETAMINOPHEN\OXYCODONE HYDROCHLORIDE [Concomitant]
     Active Substance: ACETAMINOPHEN\OXYCODONE HYDROCHLORIDE
     Dosage: 1 DOSAGE FORM
  6. OXYCODONE [Concomitant]
     Active Substance: OXYCODONE
     Dosage: 3 MILLIGRAM, TID
     Route: 042
  7. OXYCODONE [Concomitant]
     Active Substance: OXYCODONE
     Dosage: 10 MILLIGRAM, BID
  8. OXYCODONE [Concomitant]
     Active Substance: OXYCODONE
     Dosage: 10 MILLIGRAM, BID
  9. NALDEMEDINE [Concomitant]
     Active Substance: NALDEMEDINE
     Dosage: 200 MICROGRAM, QD
  10. NALDEMEDINE [Concomitant]
     Active Substance: NALDEMEDINE
     Dosage: UNK1 TABLET
  11. ACETAMINOPHEN [Concomitant]
     Active Substance: ACETAMINOPHEN
     Indication: Pain
     Dosage: 1000 MILLIGRAM
     Route: 048

REACTIONS (4)
  - Constipation [Not Recovered/Not Resolved]
  - Condition aggravated [Unknown]
  - Urticaria [Unknown]
  - Drug ineffective [Unknown]
